FAERS Safety Report 6641897-4 (Version None)
Quarter: 2010Q1

REPORT INFORMATION
  Report Type: 
  Country: None (occurrence: None)
  Receive Date: 20100319
  Receipt Date: 20100305
  Transmission Date: 20100710
  Serious: Yes (Hospitalization, Other)
  Sender: FDA-Public Use
  Company Number: US-TYCO HEALTHCARE/MALLINCKRODT-T200901279

PATIENT
  Sex: Female

DRUGS (15)
  1. OPTIMARK [Suspect]
     Indication: NUCLEAR MAGNETIC RESONANCE IMAGING
     Dosage: UNK
     Dates: start: 20060802, end: 20060802
  2. OPTIMARK [Suspect]
     Indication: ANGIOGRAM
     Dosage: 20 ML, SINGLE
     Dates: start: 20060805, end: 20060805
  3. CALCIUM ACETATE [Concomitant]
     Dosage: THREE TABLETS DAILY WITH MEALS
  4. LISINOPRIL [Concomitant]
     Dosage: 20 MG, BID
  5. METOCLOPRAMIDE [Concomitant]
     Indication: NAUSEA
     Dosage: 5 MG TID BEFORE MEALS AND AT BEDIME AS NEEDED
  6. METOPROLOL SUCCINATE [Concomitant]
     Dosage: 100 MG, BID
  7. NOVOLOG [Concomitant]
     Dosage: VIA INSULIN PUMP 24 UNITS DAILY
  8. LEVAQUIN [Concomitant]
     Dosage: 250 MG, QD
  9. FLAGYL [Concomitant]
     Dosage: 500 MG, TID
  10. PROCARDIA XL [Concomitant]
     Dosage: 60 MG, BID
  11. RENAGEL                            /01459901/ [Concomitant]
     Dosage: 800 MG, BID
  12. TERAZOSIN HCL [Concomitant]
     Dosage: 2 MG, AT BEDTIME
  13. COLACE [Concomitant]
     Dosage: 10 MG, QD
  14. MICARDIS [Concomitant]
     Dosage: 80 MG, QD
  15. EPOGEN [Concomitant]
     Dosage: 40,000 UNITS EVERY TUESDAY

REACTIONS (23)
  - ABDOMINAL PAIN [None]
  - ASCITES [None]
  - BILIARY DILATATION [None]
  - BRADYCARDIA [None]
  - CARDIOMEGALY [None]
  - CEREBROVASCULAR ACCIDENT [None]
  - CHOLECYSTITIS [None]
  - DEVICE RELATED SEPSIS [None]
  - GASTRITIS [None]
  - HEPATOMEGALY [None]
  - HYPERCOAGULATION [None]
  - IMPAIRED GASTRIC EMPTYING [None]
  - NAUSEA [None]
  - NEPHROGENIC SYSTEMIC FIBROSIS [None]
  - OFF LABEL USE [None]
  - PERICARDIAL EFFUSION [None]
  - PLEURAL EFFUSION [None]
  - PROTEUS INFECTION [None]
  - PULMONARY HYPERTENSION [None]
  - RENAL TRANSPLANT [None]
  - RENAL TUBULAR NECROSIS [None]
  - SPLENIC INFARCTION [None]
  - SPLENOMEGALY [None]
